FAERS Safety Report 18565480 (Version 10)
Quarter: 2021Q1

REPORT INFORMATION
  Report Type: Report from Study
  Country: CA (occurrence: CA)
  Receive Date: 20201201
  Receipt Date: 20210126
  Transmission Date: 20210419
  Serious: Yes (Hospitalization)
  Sender: FDA-Public Use
  Company Number: CA-PFIZER INC-2020467614

PATIENT
  Age: 43 Year
  Sex: Female
  Weight: 53.3 kg

DRUGS (30)
  1. IRINOTECAN HCL [Suspect]
     Active Substance: IRINOTECAN HYDROCHLORIDE
     Indication: COLORECTAL CANCER METASTATIC
     Dosage: 180 MG/M2, CYCLIC (QOW)
     Route: 042
     Dates: start: 20200916, end: 20201022
  2. IRINOTECAN HCL [Suspect]
     Active Substance: IRINOTECAN HYDROCHLORIDE
     Dosage: 180 MG/M2, CYCLIC (QOW)
     Route: 042
     Dates: start: 20201119, end: 20201119
  3. FLUOROURACIL. [Suspect]
     Active Substance: FLUOROURACIL
     Dosage: 2400 MG/M2, CYCLIC (QOW)
     Route: 042
     Dates: start: 20201105, end: 20201107
  4. DIPHENHYDRAMINE. [Concomitant]
     Active Substance: DIPHENHYDRAMINE
     Dosage: 50 MG
     Dates: start: 20201022
  5. BINIMETINIB [Suspect]
     Active Substance: BINIMETINIB
     Dosage: 45 MG, 2X/DAY
     Route: 048
     Dates: start: 20200924, end: 20200924
  6. METAMUCIL [Concomitant]
     Active Substance: PLANTAGO SEED
     Dosage: 7 G
     Dates: start: 20201027, end: 20201125
  7. IRINOTECAN HCL [Suspect]
     Active Substance: IRINOTECAN HYDROCHLORIDE
     Dosage: 180 MG/M2, CYCLIC (QOW)
     Route: 042
     Dates: start: 20201105, end: 20201105
  8. BINIMETINIB [Suspect]
     Active Substance: BINIMETINIB
     Indication: COLORECTAL CANCER METASTATIC
     Dosage: 45 MG, 2X/DAY
     Route: 048
     Dates: start: 20200916, end: 20200923
  9. PEMBROLIZUMAB. [Suspect]
     Active Substance: PEMBROLIZUMAB
     Dosage: 200 MG, EVERY 3 WEEKS
     Route: 042
     Dates: start: 20201126
  10. OLANZAPINE. [Concomitant]
     Active Substance: OLANZAPINE
     Indication: NAUSEA
     Dosage: 5 MILLIGRAM
     Dates: start: 20201105
  11. FLUOROURACIL. [Suspect]
     Active Substance: FLUOROURACIL
     Indication: COLORECTAL CANCER METASTATIC
     Dosage: 2400 MG/M2, CYCLIC (QOW)
     Route: 042
     Dates: start: 20200916, end: 20201024
  12. PEMBROLIZUMAB. [Suspect]
     Active Substance: PEMBROLIZUMAB
     Indication: COLORECTAL CANCER METASTATIC
     Dosage: 200 MG, EVERY 3 WEEKS
     Route: 042
     Dates: start: 20200916, end: 20201014
  13. ONDANSETRON [Concomitant]
     Active Substance: ONDANSETRON
     Dosage: 24 MG
     Dates: start: 20200916
  14. SINGULAIR [Concomitant]
     Active Substance: MONTELUKAST SODIUM
     Dosage: 10 MG
     Dates: start: 20201022
  15. FAMOTIDINE. [Concomitant]
     Active Substance: FAMOTIDINE
     Indication: INFUSION RELATED REACTION
     Dosage: 20 MG
     Route: 042
     Dates: start: 20201022
  16. IRINOTECAN HCL [Suspect]
     Active Substance: IRINOTECAN HYDROCHLORIDE
     Dosage: 180 MG/M2, CYCLIC (QOW)
     Route: 042
     Dates: start: 20201203
  17. LEUCOVORIN. [Suspect]
     Active Substance: LEUCOVORIN
     Dosage: 400 MG/M2, CYCLIC (QOW)
     Route: 042
     Dates: start: 20201119, end: 20201119
  18. PEMBROLIZUMAB. [Suspect]
     Active Substance: PEMBROLIZUMAB
     Dosage: 200 MG, EVERY 3 WEEKS (VOLUME OF INFUSION: 58 ML)
     Route: 042
     Dates: start: 20201105, end: 20201105
  19. ONDANSETRON [Concomitant]
     Active Substance: ONDANSETRON
     Dosage: 8 MG
     Dates: start: 20200917
  20. ATROPINE. [Concomitant]
     Active Substance: ATROPINE
     Dosage: 0.4 MG
     Route: 058
     Dates: start: 20200916
  21. VITAMIN D [VITAMIN D NOS] [Concomitant]
     Active Substance: VITAMIN D NOS
     Dosage: 10000 IU
     Dates: start: 20201102
  22. STEMETIL [Concomitant]
     Active Substance: PROCHLORPERAZINE
     Dosage: 10 MG
     Dates: start: 20201022
  23. LEUCOVORIN. [Suspect]
     Active Substance: LEUCOVORIN
     Dosage: 400 MG/M2, CYCLIC (QOW)
     Route: 042
     Dates: start: 20201203
  24. DEXAMETHASONE. [Concomitant]
     Active Substance: DEXAMETHASONE
     Dosage: 10 MG
     Dates: start: 20201022
  25. PEGFILGRASTIM [Concomitant]
     Active Substance: PEGFILGRASTIM
     Dosage: 6 UG
     Dates: start: 20201023
  26. LEUCOVORIN. [Suspect]
     Active Substance: LEUCOVORIN
     Indication: COLORECTAL CANCER METASTATIC
     Dosage: 400 MG/M2, CYCLIC (QOW)
     Route: 042
     Dates: start: 20200916, end: 20201022
  27. LEUCOVORIN. [Suspect]
     Active Substance: LEUCOVORIN
     Dosage: 400 MG/M2, CYCLIC (QOW)
     Route: 042
     Dates: start: 20201105, end: 20201105
  28. FLUOROURACIL. [Suspect]
     Active Substance: FLUOROURACIL
     Dosage: 2400 MG/M2, CYCLIC (QOW)
     Route: 042
     Dates: start: 20201203
  29. ASPIRIN [ACETYLSALICYLIC ACID] [Concomitant]
     Active Substance: ASPIRIN
     Dosage: 325 MG
     Dates: start: 20201022
  30. LORATADINE. [Concomitant]
     Active Substance: LORATADINE
     Dosage: 10 MG
     Dates: start: 20201022

REACTIONS (1)
  - Infusion related reaction [Recovered/Resolved]

NARRATIVE: CASE EVENT DATE: 20201105
